FAERS Safety Report 18048563 (Version 1)
Quarter: 2020Q3

REPORT INFORMATION
  Report Type: Spontaneous
  Country: US (occurrence: US)
  Receive Date: 20200720
  Receipt Date: 20200720
  Transmission Date: 20201103
  Serious: Yes (Disabling)
  Sender: FDA-Public Use
  Company Number: None

PATIENT
  Age: 51 Year
  Sex: Female
  Weight: 56.25 kg

DRUGS (1)
  1. FLUOXETINE [Suspect]
     Active Substance: FLUOXETINE HYDROCHLORIDE
     Indication: DEPRESSION
     Dosage: ?          QUANTITY:3 CAPSULE(S);?
     Route: 048
     Dates: start: 20200605, end: 20200619

REACTIONS (12)
  - Product colour issue [None]
  - Product substitution issue [None]
  - Diarrhoea [None]
  - Malaise [None]
  - Dyspepsia [None]
  - Discoloured vomit [None]
  - Feeling abnormal [None]
  - Depression [None]
  - Toxicity to various agents [None]
  - Nausea [None]
  - Disease recurrence [None]
  - Vomiting [None]

NARRATIVE: CASE EVENT DATE: 20200619
